FAERS Safety Report 7633000-9 (Version None)
Quarter: 2011Q3

REPORT INFORMATION
  Report Type: 
  Country: None (occurrence: None)
  Receive Date: 20110725
  Receipt Date: 20110719
  Transmission Date: 20111222
  Serious: Yes (Disabling, Other)
  Sender: FDA-Public Use
  Company Number: PHHY2011US62004

PATIENT
  Sex: Female
  Weight: 78.64 kg

DRUGS (6)
  1. TOBI [Suspect]
     Indication: BRONCHITIS
     Dosage: 300 MG, BID
     Dates: start: 20110625, end: 20110627
  2. BUPROPION HYDROCHLORIDE [Concomitant]
     Dosage: 150 MG, QD
     Route: 048
     Dates: start: 20110617
  3. CIPROFLOXACIN HCL [Concomitant]
     Indication: ASTHMA
     Dosage: 1 DF, BID
     Route: 048
     Dates: start: 20110617
  4. SPIRIVA [Concomitant]
     Indication: ASTHMA
     Dosage: 1 DF, QD
     Dates: start: 20110617
  5. PROAIR HFA [Concomitant]
     Indication: ASTHMA
     Dosage: 2 DF, EVERY 6 HOURS PRN
     Dates: start: 20110617
  6. SYMBICORT [Concomitant]
     Indication: ASTHMA
     Dosage: 2 DF, BID
     Dates: start: 20110617

REACTIONS (3)
  - URTICARIA [None]
  - INCOHERENT [None]
  - SKIN EXFOLIATION [None]
